FAERS Safety Report 11420003 (Version 2)
Quarter: 2015Q3

REPORT INFORMATION
  Report Type: Report from Study
  Country: US (occurrence: US)
  Receive Date: 20150826
  Receipt Date: 20150902
  Transmission Date: 20151125
  Serious: Yes (Hospitalization, Other)
  Sender: FDA-Public Use
  Company Number: US-ABBVIE-15P-163-1450727-00

PATIENT
  Age: 55 Year
  Sex: Male

DRUGS (8)
  1. EFFEXOR [Concomitant]
     Active Substance: VENLAFAXINE HYDROCHLORIDE
     Indication: MENTAL DISORDER
  2. LAMICTAL [Concomitant]
     Active Substance: LAMOTRIGINE
     Indication: MENTAL DISORDER
  3. VIEKIRA PAK [Suspect]
     Active Substance: DASABUVIR\OMBITASVIR\PARITAPREVIR\RITONAVIR
     Indication: HEPATITIS C
     Dosage: COMPLETED
     Route: 048
     Dates: start: 20150317, end: 20150609
  4. WELLBUTRIN [Concomitant]
     Active Substance: BUPROPION HYDROCHLORIDE
     Indication: MENTAL DISORDER
  5. TRILEPTAL [Concomitant]
     Active Substance: OXCARBAZEPINE
     Indication: MENTAL DISORDER
  6. LITHIUM. [Concomitant]
     Active Substance: LITHIUM
     Indication: MENTAL DISORDER
     Dates: start: 201508
  7. BENZTROPINE [Concomitant]
     Active Substance: BENZTROPINE
     Indication: MENTAL DISORDER
  8. ZYPREXA [Concomitant]
     Active Substance: OLANZAPINE
     Indication: MENTAL DISORDER
     Dates: start: 201507

REACTIONS (24)
  - Arthroscopy [Unknown]
  - Depression [Not Recovered/Not Resolved]
  - Constipation [Not Recovered/Not Resolved]
  - Hallucination [Unknown]
  - Abnormal behaviour [Unknown]
  - Peripheral swelling [Unknown]
  - Contusion [Unknown]
  - Peripheral swelling [Unknown]
  - Fatigue [Not Recovered/Not Resolved]
  - Irritability [Not Recovered/Not Resolved]
  - Pain in extremity [Unknown]
  - Paranoia [Unknown]
  - Tremor [Not Recovered/Not Resolved]
  - Insomnia [Not Recovered/Not Resolved]
  - Hyperhidrosis [Not Recovered/Not Resolved]
  - Foot fracture [Unknown]
  - Thirst [Not Recovered/Not Resolved]
  - Headache [Not Recovered/Not Resolved]
  - Mental disorder [Unknown]
  - Delusion [Unknown]
  - Dysarthria [Unknown]
  - Irritability [Unknown]
  - Headache [Recovered/Resolved]
  - Amnesia [Unknown]

NARRATIVE: CASE EVENT DATE: 201504
